FAERS Safety Report 8256568-0 (Version None)
Quarter: 2012Q2

REPORT INFORMATION
  Report Type: 
  Country: None (occurrence: None)
  Receive Date: 20120403
  Receipt Date: 20120403
  Transmission Date: 20120825
  Serious: Yes (Other)
  Sender: FDA-Public Use
  Company Number: US-PFIZER INC-2012079110

PATIENT
  Age: 64 Year
  Sex: Female

DRUGS (1)
  1. AMIODARONE HCL [Suspect]
     Dosage: UNK
     Dates: end: 20120301

REACTIONS (1)
  - LUNG DISORDER [None]
